FAERS Safety Report 16042124 (Version 1)
Quarter: 2019Q1

REPORT INFORMATION
  Report Type: Spontaneous
  Country: US (occurrence: US)
  Receive Date: 20190306
  Receipt Date: 20190306
  Transmission Date: 20190418
  Serious: No
  Sender: FDA-Public Use
  Company Number: US-AKORN PHARMACEUTICALS-2018AKN00376

PATIENT
  Age: 19 Year
  Sex: Male

DRUGS (3)
  1. UNSPECIFIED ANTIPERSPIRANT [Concomitant]
     Dosage: UNK
     Dates: start: 2015
  2. DAYTRANA [Concomitant]
     Active Substance: METHYLPHENIDATE
     Dosage: 30 MG, 1X/DAY
  3. MYORISAN [Suspect]
     Active Substance: ISOTRETINOIN
     Indication: ACNE
     Dosage: 40 MG, 1X/DAY
     Route: 048
     Dates: start: 20180224

REACTIONS (2)
  - Off label use [Not Recovered/Not Resolved]
  - Hyperhidrosis [Not Recovered/Not Resolved]

NARRATIVE: CASE EVENT DATE: 2018
